FAERS Safety Report 10489615 (Version 1)
Quarter: 2014Q3

REPORT INFORMATION
  Report Type: Spontaneous
  Country: SA (occurrence: None)
  Receive Date: 20140930
  Receipt Date: 20140930
  Transmission Date: 20150326
  Serious: Yes (Other)
  Sender: FDA-Public Use
  Company Number: VAL_03399_2014

PATIENT
  Age: 32 Year
  Sex: Female

DRUGS (7)
  1. UNFRACTIONATED HEPARIN (UNKNOWN, UNKNOWN) [Concomitant]
  2. SACCHARATED IRON OXIDE (UNKNOWN) [Concomitant]
  3. EPOETIN ALFA (UNKNOWN, UNKNOWN) [Concomitant]
  4. CALCIUM CARBONATE (UNKNOWN) [Concomitant]
     Active Substance: CALCIUM CARBONATE
  5. CALCITRIOL. [Suspect]
     Active Substance: CALCITRIOL
     Indication: PRODUCT USED FOR UNKNOWN INDICATION
     Dosage: (0.25 UG 3X/WEEK)
  6. ASPIRIN (UNKNOWN) [Concomitant]
     Active Substance: ASPIRIN
  7. CYANOCOBALAMIN (UNKNOWN) [Concomitant]
     Active Substance: CYANOCOBALAMIN

REACTIONS (5)
  - Malaise [None]
  - Exposure during pregnancy [None]
  - Rash [None]
  - Premature delivery [None]
  - Systemic lupus erythematosus [None]
